FAERS Safety Report 6597662-X (Version None)
Quarter: 2010Q1

REPORT INFORMATION
  Report Type: 
  Country: None (occurrence: None)
  Receive Date: 20100216
  Receipt Date: 20100201
  Transmission Date: 20100710
  Serious: Yes (Other)
  Sender: FDA-Public Use
  Company Number: 230014K08CAN

PATIENT
  Sex: Female

DRUGS (6)
  1. REBIF [Suspect]
     Indication: RELAPSING-REMITTING MULTIPLE SCLEROSIS
     Dosage: 22 MCG, 3 IN 1 WEEKS
     Dates: start: 19990212
  2. SLEEPING PILL         (ALL OTHER THERAPEUTIC PRODUCTS) [Concomitant]
  3. CELEXA [Concomitant]
  4. OXYBUTYNIN (OXYBUTYNIN /00538901/) [Concomitant]
  5. COD LIVER OIL FORTIFIED TAB [Concomitant]
  6. CALCIUM       (CALCIUM-SANDOZ /00009901/) [Concomitant]

REACTIONS (5)
  - APHASIA [None]
  - BREAST CANCER FEMALE [None]
  - DEMENTIA [None]
  - STRESS [None]
  - UPPER RESPIRATORY TRACT INFECTION [None]
